FAERS Safety Report 15834126 (Version 2)
Quarter: 2019Q4

REPORT INFORMATION
  Report Type: Spontaneous
  Country: FR (occurrence: FR)
  Receive Date: 20190116
  Receipt Date: 20191113
  Transmission Date: 20200122
  Serious: Yes (Death, Hospitalization)
  Sender: FDA-Public Use
  Company Number: FR-ALLERGAN-1901840US

PATIENT
  Sex: Female

DRUGS (10)
  1. BOTOX [Suspect]
     Active Substance: ONABOTULINUMTOXINA
     Indication: SALIVARY HYPERSECRETION
     Dosage: UNK UNK, SINGLE
     Route: 062
     Dates: start: 20181004, end: 20181004
  2. XENAZINE [Concomitant]
     Active Substance: TETRABENAZINE
     Indication: DYSKINESIA
     Dosage: 0.25 MG, QID
  3. SEEBRI [Concomitant]
     Active Substance: GLYCOPYRROLATE
  4. SITAGLIPTINE [Concomitant]
     Active Substance: SITAGLIPTIN
  5. KERLONE [Concomitant]
     Active Substance: BETAXOLOL HYDROCHLORIDE
  6. CITALOPRAM [Concomitant]
     Active Substance: CITALOPRAM HYDROBROMIDE
  7. XENAZINE [Suspect]
     Active Substance: TETRABENAZINE
     Indication: DYSKINESIA
     Dosage: 1 DF, QD
     Route: 048
  8. PARIET [Concomitant]
     Active Substance: RABEPRAZOLE SODIUM
  9. METFORMINE [Concomitant]
     Active Substance: METFORMIN HYDROCHLORIDE
  10. TETRABENAZINE. [Concomitant]
     Active Substance: TETRABENAZINE

REACTIONS (12)
  - Laryngeal oedema [Unknown]
  - Dysphagia [Fatal]
  - Salivary gland disorder [Unknown]
  - Malnutrition [Unknown]
  - Off label use [Unknown]
  - Choking [Fatal]
  - Acute respiratory failure [Unknown]
  - Acute respiratory distress syndrome [Fatal]
  - Dyspnoea [Fatal]
  - Tachypnoea [Unknown]
  - General physical health deterioration [Unknown]
  - Incorrect route of product administration [Unknown]

NARRATIVE: CASE EVENT DATE: 20181005
